FAERS Safety Report 23982257 (Version 1)
Quarter: 2024Q2

REPORT INFORMATION
  Report Type: Spontaneous
  Country: CN (occurrence: CN)
  Receive Date: 20240617
  Receipt Date: 20240617
  Transmission Date: 20240715
  Serious: Yes (Other)
  Sender: FDA-Public Use
  Company Number: CN-BAYER-2024A086801

PATIENT
  Age: 75 Year
  Sex: Male
  Weight: 66.4 kg

DRUGS (3)
  1. KERENDIA [Suspect]
     Active Substance: FINERENONE
     Indication: Chronic kidney disease
     Dosage: 10 MG, QD
     Route: 048
     Dates: start: 20240520, end: 20240612
  2. ALLISARTAN ISOPROXIL [Suspect]
     Active Substance: ALLISARTAN ISOPROXIL
     Indication: Chronic kidney disease
     Dosage: 240 MG, QD
     Route: 048
     Dates: start: 20240517, end: 20240612
  3. DAPAGLIFLOZIN [Suspect]
     Active Substance: DAPAGLIFLOZIN
     Indication: Chronic kidney disease
     Dosage: 10 MG, QD
     Route: 048
     Dates: start: 20240517, end: 20240612

REACTIONS (1)
  - Renal impairment [Not Recovered/Not Resolved]

NARRATIVE: CASE EVENT DATE: 20240523
